FAERS Safety Report 11410680 (Version 3)
Quarter: 2016Q2

REPORT INFORMATION
  Report Type: Spontaneous
  Country: US (occurrence: US)
  Receive Date: 20150824
  Receipt Date: 20160420
  Transmission Date: 20160815
  Serious: Yes (Other)
  Sender: FDA-Public Use
  Company Number: US-009507513-1507USA013838

PATIENT
  Age: 21 Year
  Sex: Female
  Weight: 68.93 kg

DRUGS (1)
  1. NEXPLANON [Suspect]
     Active Substance: ETONOGESTREL
     Dosage: 1 ROD
     Route: 059
     Dates: start: 20150527, end: 20150814

REACTIONS (7)
  - Bacterial vaginosis [Unknown]
  - Road traffic accident [Unknown]
  - Device deployment issue [Recovered/Resolved]
  - Implant site erosion [Recovered/Resolved]
  - Device expulsion [Recovered/Resolved]
  - Device difficult to use [Recovered/Resolved]
  - Implant site cellulitis [Recovered/Resolved]

NARRATIVE: CASE EVENT DATE: 2015
